FAERS Safety Report 14929571 (Version 2)
Quarter: 2018Q3

REPORT INFORMATION
  Report Type: Report from Study
  Country: JP (occurrence: JP)
  Receive Date: 20180523
  Receipt Date: 20180717
  Transmission Date: 20181010
  Serious: Yes (Other)
  Sender: FDA-Public Use
  Company Number: JP-ELI_LILLY_AND_COMPANY-JP201805006189

PATIENT
  Age: 77 Year
  Sex: Male
  Weight: 59 kg

DRUGS (4)
  1. DOCETAXEL. [Concomitant]
     Active Substance: DOCETAXEL
     Dosage: 50 MG/M2, UNK
     Route: 041
     Dates: start: 20171115, end: 20171115
  2. RAMUCIRUMAB [Suspect]
     Active Substance: RAMUCIRUMAB
     Indication: ADENOSQUAMOUS CELL LUNG CANCER RECURRENT
     Dosage: 10 MG/KG, UNK
     Route: 041
     Dates: start: 20171024
  3. DOCETAXEL. [Concomitant]
     Active Substance: DOCETAXEL
     Indication: LUNG SQUAMOUS CELL CARCINOMA RECURRENT
     Dosage: 60 MG/M2, UNK
     Route: 041
     Dates: start: 20171024, end: 20171024
  4. DOCETAXEL. [Concomitant]
     Active Substance: DOCETAXEL
     Dosage: 40 MG/M2, UNK
     Route: 041
     Dates: start: 20171206, end: 20180130

REACTIONS (1)
  - Febrile neutropenia [Recovered/Resolved]

NARRATIVE: CASE EVENT DATE: 20171120
